FAERS Safety Report 7280700-9 (Version None)
Quarter: 2011Q1

REPORT INFORMATION
  Report Type: 
  Country: None (occurrence: None)
  Receive Date: 20110208
  Receipt Date: 20110201
  Transmission Date: 20110831
  Serious: Yes (Life-Threatening, Hospitalization)
  Sender: FDA-Public Use
  Company Number: B0683252A

PATIENT
  Sex: Male

DRUGS (4)
  1. DIAZEPAM [Suspect]
     Indication: SEDATION
     Dosage: 20TAB PER DAY
     Route: 048
     Dates: start: 20101017
  2. REQUIP XL [Suspect]
     Indication: PARKINSON'S DISEASE
     Dosage: 6MG PER DAY
     Route: 048
     Dates: start: 20090612
  3. ROPINIROLE [Suspect]
     Dosage: 30TAB PER DAY
     Route: 048
     Dates: start: 20101017
  4. MIRTAZAPINE [Suspect]
     Indication: ANXIETY
     Dosage: 30TAB PER DAY
     Route: 048
     Dates: start: 20101017

REACTIONS (2)
  - SUICIDE ATTEMPT [None]
  - INTENTIONAL OVERDOSE [None]
